FAERS Safety Report 18775856 (Version 2)
Quarter: 2021Q1

REPORT INFORMATION
  Report Type: Report from Study
  Country: US (occurrence: US)
  Receive Date: 20210122
  Receipt Date: 20210209
  Transmission Date: 20210419
  Serious: No
  Sender: FDA-Public Use
  Company Number: NVSC2021US014736

PATIENT
  Age: 37 Year
  Sex: Male

DRUGS (2)
  1. VITAMIN D [Concomitant]
     Active Substance: VITAMIN D NOS
     Indication: PRODUCT USED FOR UNKNOWN INDICATION
     Dosage: UNK
     Route: 065
  2. KESIMPTA [Suspect]
     Active Substance: OFATUMUMAB
     Indication: MULTIPLE SCLEROSIS
     Dosage: 20 MG, QW (FORMULATION: SOLUTION)
     Route: 058
     Dates: start: 20201117, end: 20201219

REACTIONS (4)
  - Psoriasis [Unknown]
  - Hypersensitivity [Unknown]
  - Palmoplantar pustulosis [Unknown]
  - Rash [Unknown]

NARRATIVE: CASE EVENT DATE: 20201219
